FAERS Safety Report 5190870-4 (Version None)
Quarter: 2006Q4

REPORT INFORMATION
  Report Type: 
  Country: None (occurrence: None)
  Receive Date: 20061222
  Receipt Date: 20061213
  Transmission Date: 20070319
  Serious: Yes (Hospitalization)
  Sender: FDA-Public Use
  Company Number: JP-SANOFI-SYNTHELABO-A01200611027

PATIENT
  Age: 75 Year
  Sex: Male

DRUGS (3)
  1. OXALIPLATIN [Suspect]
     Indication: RECTAL CANCER
     Route: 042
     Dates: start: 20061204, end: 20061204
  2. FLUOROURACIL [Suspect]
     Dosage: 500 MG IV BOLUS FOLLWOED BY 1750MG INFUSION ON D1+2
     Route: 042
     Dates: start: 20061204, end: 20061205
  3. LEUCOVORIN CALCIUM [Concomitant]
     Route: 042
     Dates: start: 20061204, end: 20061204

REACTIONS (1)
  - LOSS OF CONSCIOUSNESS [None]
